FAERS Safety Report 14136261 (Version 2)
Quarter: 2018Q1

REPORT INFORMATION
  Report Type: Report from Study
  Country: US (occurrence: US)
  Receive Date: 20171026
  Receipt Date: 20180123
  Transmission Date: 20180508
  Serious: No
  Sender: FDA-Public Use
  Company Number: US-AMGEN-USASL2017131004

PATIENT
  Age: 64 Year
  Sex: Male
  Weight: 107.94 kg

DRUGS (1)
  1. REPATHA [Suspect]
     Active Substance: EVOLOCUMAB
     Indication: PRODUCT USED FOR UNKNOWN INDICATION
     Dosage: 140 MG, Q2WK
     Route: 058
     Dates: start: 20151120

REACTIONS (5)
  - Swelling face [Unknown]
  - Fatigue [Unknown]
  - Injection site bruising [Recovered/Resolved]
  - Dizziness [Unknown]
  - Rhinorrhoea [Unknown]
